FAERS Safety Report 5597325-3 (Version None)
Quarter: 2007Q4

REPORT INFORMATION
  Report Type: 
  Country: None (occurrence: None)
  Receive Date: 20071221
  Receipt Date: 20071108
  Transmission Date: 20080405
  Serious: No
  Sender: FDA-Public Use
  Company Number: SPV1-2007-04875

PATIENT
  Age: 7 Year
  Sex: Male
  Weight: 35.8 kg

DRUGS (1)
  1. VYVNASE (LISDEXAMFETAMINE DIMESYLATE) CAPSULE [Suspect]
     Indication: ATTENTION DEFICIT/HYPERACTIVITY DISORDER
     Dosage: 30 MG, 1X/DAY:QD, ORAL
     Route: 048
     Dates: start: 20071108, end: 20071108

REACTIONS (3)
  - FEELING JITTERY [None]
  - NAUSEA [None]
  - VOMITING [None]
